FAERS Safety Report 6310922-2 (Version None)
Quarter: 2009Q3

REPORT INFORMATION
  Report Type: 
  Country: None (occurrence: None)
  Receive Date: 20090812
  Receipt Date: 20090729
  Transmission Date: 20100115
  Serious: Yes (Other)
  Sender: FDA-Public Use
  Company Number: TPH-00094

PATIENT
  Age: 31 Year
  Sex: Female

DRUGS (1)
  1. TRIQUILAR LOT NUMBER: 1617A [Suspect]
     Indication: CONTRACEPTION
     Dosage: ORAL
     Route: 048
     Dates: start: 20020101, end: 20080909

REACTIONS (8)
  - ABDOMINAL PAIN [None]
  - ABNORMAL WITHDRAWAL BLEEDING [None]
  - ANTEPARTUM HAEMORRHAGE [None]
  - CAESAREAN SECTION [None]
  - INAPPROPRIATE SCHEDULE OF DRUG ADMINISTRATION [None]
  - INTRAPARTUM HAEMORRHAGE [None]
  - PREGNANCY ON ORAL CONTRACEPTIVE [None]
  - UTERINE CONTRACTIONS DURING PREGNANCY [None]
